FAERS Safety Report 5501350-8 (Version None)
Quarter: 2007Q4

REPORT INFORMATION
  Report Type: 
  Country: None (occurrence: None)
  Receive Date: 20071026
  Receipt Date: 20071015
  Transmission Date: 20080405
  Serious: Yes (Other)
  Sender: FDA-Public Use
  Company Number: 07H-163-0313344-00

PATIENT
  Age: 21 Year
  Sex: Female
  Weight: 72 kg

DRUGS (11)
  1. MAGNESIUM SULFATE [Suspect]
     Indication: ECLAMPSIA
     Dosage: INTRAVENOUS
     Route: 042
  2. SODIUM CITRATE [Concomitant]
  3. OXYGEN (OXYGEN) [Concomitant]
  4. ETOMIDATE [Concomitant]
  5. SUCCINYLCHOLINE CHLORIDE [Concomitant]
  6. NITROUS OXIDE W/ OXYGEN [Concomitant]
  7. SEVOFLURANE IN OXYGEN (SEVOFLURANE) [Concomitant]
  8. FENTANYL [Concomitant]
  9. ROCURONIUM (ROCURONIUM) [Concomitant]
  10. NEOSTIGMINE (NEOSTIGMINE) [Concomitant]
  11. GLYCOPYRROLATE [Concomitant]

REACTIONS (4)
  - CONDITION AGGRAVATED [None]
  - CONVULSION [None]
  - MYASTHENIA GRAVIS [None]
  - RESPIRATORY FAILURE [None]
